FAERS Safety Report 5063079-2 (Version None)
Quarter: 2006Q3

REPORT INFORMATION
  Report Type: 
  Country: None (occurrence: None)
  Receive Date: 20060727
  Receipt Date: 20060720
  Transmission Date: 20061208
  Serious: Yes (Other)
  Sender: FDA-Public Use
  Company Number: BR-BRISTOL-MYERS SQUIBB COMPANY-13449111

PATIENT
  Age: 77 Year
  Sex: Female

DRUGS (7)
  1. TEQUIN [Suspect]
     Indication: URINARY TRACT INFECTION
     Dates: start: 20060715
  2. TEQUIN [Suspect]
     Indication: LUNG INFECTION
     Dates: start: 20060715
  3. INSULIN [Concomitant]
  4. SELO-ZOK [Concomitant]
  5. BENERVA [Concomitant]
  6. CEBRALAT [Concomitant]
  7. CHEMOPENT [Concomitant]

REACTIONS (5)
  - DERMATITIS [None]
  - HALLUCINATION [None]
  - ORAL DISCOMFORT [None]
  - TONGUE DISORDER [None]
  - VAGINAL SWELLING [None]
